FAERS Safety Report 9195971 (Version 3)
Quarter: 2013Q4

REPORT INFORMATION
  Report Type: Report from Study
  Country: CA (occurrence: CA)
  Receive Date: 20130328
  Receipt Date: 20131003
  Transmission Date: 20140711
  Serious: Yes (Disabling, Other)
  Sender: FDA-Public Use
  Company Number: PHHY2013CA029433

PATIENT
  Age: 30 Year
  Sex: Female

DRUGS (5)
  1. CLOZARIL [Suspect]
     Indication: SCHIZOAFFECTIVE DISORDER BIPOLAR TYPE
     Dosage: 350 MG, (100 MG AM AND 250 MG HS)
     Route: 048
     Dates: start: 20120618
  2. CLOZARIL [Suspect]
     Indication: SCHIZOPHRENIA
     Dosage: 350 MG, (100 MG AM AND 250 MG HS)
     Route: 048
     Dates: start: 20120621
  3. LAMICTAL [Suspect]
     Dosage: 100 MG, BID
  4. LITHIUM [Concomitant]
     Dosage: UNK
  5. INVEGA SUSTENNA [Concomitant]
     Dosage: UNK

REACTIONS (2)
  - Post-traumatic epilepsy [Not Recovered/Not Resolved]
  - Myoclonus [Not Recovered/Not Resolved]
